FAERS Safety Report 16777746 (Version 1)
Quarter: 2019Q4

REPORT INFORMATION
  Report Type: Spontaneous
  Country: US (occurrence: US)
  Receive Date: 20190905
  Receipt Date: 20190905
  Transmission Date: 20200122
  Serious: Yes (Other)
  Sender: FDA-Public Use
  Company Number: None

PATIENT
  Age: 72 Year
  Sex: Female
  Weight: 54.72 kg

DRUGS (2)
  1. TAFINLAR [Suspect]
     Active Substance: DABRAFENIB MESYLATE
     Indication: BREAST CANCER
     Route: 048
     Dates: start: 20190812, end: 20190905
  2. MEKINIST [Suspect]
     Active Substance: TRAMETINIB DIMETHYL SULFOXIDE
     Indication: BREAST CANCER
     Route: 048
     Dates: start: 20190812, end: 20190905

REACTIONS (1)
  - Disease progression [None]

NARRATIVE: CASE EVENT DATE: 20190905
